FAERS Safety Report 7250515-6 (Version None)
Quarter: 2011Q1

REPORT INFORMATION
  Report Type: 
  Country: None (occurrence: None)
  Receive Date: 20110128
  Receipt Date: 20110121
  Transmission Date: 20110831
  Serious: Yes (Other)
  Sender: FDA-Public Use
  Company Number: PHHY2011US05325

PATIENT
  Age: 46 Year

DRUGS (2)
  1. ZOMETA [Suspect]
     Route: 042
  2. NU-NAPROX [Concomitant]

REACTIONS (2)
  - BONE DENSITY DECREASED [None]
  - OSTEONECROSIS OF JAW [None]
